FAERS Safety Report 6756553-1 (Version None)
Quarter: 2010Q2

REPORT INFORMATION
  Report Type: 
  Country: None (occurrence: None)
  Receive Date: 20100604
  Receipt Date: 20100305
  Transmission Date: 20101027
  Serious: No
  Sender: FDA-Public Use
  Company Number: A0798029A

PATIENT
  Sex: Female
  Weight: 120.5 kg

DRUGS (1)
  1. LAMICTAL [Suspect]
     Indication: MYOCLONIC EPILEPSY
     Dosage: 500MG PER DAY
     Dates: start: 20091229

REACTIONS (2)
  - DRUG EXPOSURE DURING PREGNANCY [None]
  - SYMPHYSIOLYSIS [None]
